FAERS Safety Report 7486680-5 (Version None)
Quarter: 2011Q2

REPORT INFORMATION
  Report Type: 
  Country: None (occurrence: None)
  Receive Date: 20110517
  Receipt Date: 20100819
  Transmission Date: 20111010
  Serious: No
  Sender: FDA-Public Use
  Company Number: US-NOVEN-ALL1-2010-04419

PATIENT
  Sex: Female
  Weight: 52.154 kg

DRUGS (6)
  1. DAYTRANA [Suspect]
     Dosage: 20 MG, 1X/DAY:QD
     Route: 062
     Dates: start: 20100812, end: 20100812
  2. LEXAPRO [Concomitant]
     Dosage: 10 MG, 1X/DAY:QD
     Route: 048
     Dates: start: 20080101
  3. LAMICTAL [Concomitant]
     Dosage: 100 MG, 1X/DAY:QD
     Route: 048
     Dates: start: 20090101
  4. CONTRACEPTIVES [Concomitant]
     Dosage: UNK, UNKNOWN
     Route: 065
     Dates: start: 20080101
  5. WELLBUTRIN XL [Concomitant]
     Dosage: 100 MG, 1X/DAY:QD
     Route: 048
     Dates: start: 20080101
  6. LEXAPRO [Concomitant]

REACTIONS (3)
  - OFF LABEL USE [None]
  - FATIGUE [None]
  - ASTHENIA [None]
